FAERS Safety Report 6037717-1 (Version None)
Quarter: 2009Q1

REPORT INFORMATION
  Report Type: 
  Country: None (occurrence: None)
  Receive Date: 20090113
  Receipt Date: 20081230
  Transmission Date: 20090719
  Serious: Yes (Other)
  Sender: FDA-Public Use
  Company Number: SPV1-2008-02577

PATIENT
  Age: 14 Year
  Sex: Male
  Weight: 59 kg

DRUGS (2)
  1. DAYTRANA [Suspect]
     Indication: ATTENTION DEFICIT/HYPERACTIVITY DISORDER
     Dosage: 40 MG (TWO 2MG PATCHES), 1X/DAY;QD, TRANSDERMAL
     Route: 062
     Dates: start: 20080125
  2. STRATTERA [Suspect]
     Indication: INSOMNIA
     Dosage: 40 MG, AS REQ'D, ORAL
     Route: 048
     Dates: start: 20060111, end: 20080715

REACTIONS (15)
  - ABDOMINAL DISCOMFORT [None]
  - ASTHENIA [None]
  - BLOOD BICARBONATE INCREASED [None]
  - DEHYDRATION [None]
  - DELIRIUM [None]
  - DIZZINESS [None]
  - HEART RATE DECREASED [None]
  - HYPOTENSION [None]
  - INCOHERENT [None]
  - INSOMNIA [None]
  - LOSS OF CONSCIOUSNESS [None]
  - OFF LABEL USE [None]
  - OVERDOSE [None]
  - PRURITUS GENERALISED [None]
  - SYNCOPE [None]
